FAERS Safety Report 23484066 (Version 1)
Quarter: 2024Q1

REPORT INFORMATION
  Report Type: Spontaneous
  Country: US (occurrence: None)
  Receive Date: 20240205
  Receipt Date: 20240205
  Transmission Date: 20240410
  Serious: No
  Sender: FDA-Public Use
  Company Number: US-Encube-000559

PATIENT
  Age: 43 Year
  Sex: Male

DRUGS (1)
  1. DICLOFENAC SODIUM [Suspect]
     Active Substance: DICLOFENAC\DICLOFENAC SODIUM
     Indication: Blister
     Dosage: PUT A QUARTER OF THE TUBE
     Dates: start: 20240122, end: 202401

REACTIONS (2)
  - Application site burn [Unknown]
  - Off label use [Unknown]

NARRATIVE: CASE EVENT DATE: 20240122
